FAERS Safety Report 11983848 (Version 1)
Quarter: 2016Q1

REPORT INFORMATION
  Report Type: Report from Study
  Country: CA (occurrence: CA)
  Receive Date: 20160201
  Receipt Date: 20160201
  Transmission Date: 20160526
  Serious: Yes (Hospitalization, Other)
  Sender: FDA-Public Use
  Company Number: CA-ABBVIE-16K-028-1546248-00

PATIENT
  Sex: Female

DRUGS (3)
  1. HUMIRA [Suspect]
     Active Substance: ADALIMUMAB
     Indication: RHEUMATOID ARTHRITIS
     Route: 058
     Dates: start: 20090219
  2. TEVA PREGABALIN [Suspect]
     Active Substance: PREGABALIN
     Indication: PAIN
     Route: 048
     Dates: end: 2015
  3. TEVA PREGABALIN [Suspect]
     Active Substance: PREGABALIN
     Route: 048
     Dates: start: 2015

REACTIONS (16)
  - Loss of consciousness [Recovered/Resolved]
  - Traumatic haemorrhage [Unknown]
  - Blood pressure increased [Unknown]
  - Insomnia [Unknown]
  - Sensory disturbance [Unknown]
  - Fall [Recovered/Resolved]
  - Suicidal ideation [Unknown]
  - Laceration [Unknown]
  - Disturbance in attention [Not Recovered/Not Resolved]
  - Drug intolerance [Unknown]
  - Dizziness [Unknown]
  - Fall [Recovered/Resolved with Sequelae]
  - Memory impairment [Not Recovered/Not Resolved]
  - Cataract [Not Recovered/Not Resolved]
  - Peripheral swelling [Unknown]
  - Pain in extremity [Recovered/Resolved]

NARRATIVE: CASE EVENT DATE: 2015
